FAERS Safety Report 11003849 (Version 1)
Quarter: 2015Q2

REPORT INFORMATION
  Report Type: Spontaneous
  Country: US (occurrence: None)
  Receive Date: 20150408
  Receipt Date: 20150408
  Transmission Date: 20150821
  Serious: No
  Sender: FDA-Public Use
  Company Number: None

PATIENT
  Age: 64 Year
  Sex: Male
  Weight: 77.11 kg

DRUGS (8)
  1. AMLODIPINE [Concomitant]
     Active Substance: AMLODIPINE BESYLATE
  2. LEVOFLOXACIN 500MG ZYDUS [Suspect]
     Active Substance: LEVOFLOXACIN
     Dosage: 7 PILLS
     Route: 048
     Dates: start: 20150401, end: 20150407
  3. SAW PALMETTO [Concomitant]
     Active Substance: SAW PALMETTO
  4. FINASTERIDE. [Concomitant]
     Active Substance: FINASTERIDE
  5. ALLOPURINOL. [Concomitant]
     Active Substance: ALLOPURINOL
  6. GLUCOSAMINE/CHONDROITIN [Concomitant]
  7. LISINOPRIL. [Concomitant]
     Active Substance: LISINOPRIL
  8. CURCUMIN [Concomitant]
     Active Substance: CURCUMIN

REACTIONS (1)
  - Insomnia [None]

NARRATIVE: CASE EVENT DATE: 20150401
